FAERS Safety Report 10069935 (Version 1)
Quarter: 2014Q2

REPORT INFORMATION
  Report Type: Spontaneous
  Country: US (occurrence: US)
  Receive Date: 20140410
  Receipt Date: 20140410
  Transmission Date: 20141212
  Serious: No
  Sender: FDA-Public Use
  Company Number: US-009507513-1404USA004991

PATIENT
  Age: 63 Year
  Sex: Male

DRUGS (4)
  1. REBETOL [Suspect]
     Indication: HEPATITIS C
     Dosage: UNK
  2. PEGINTERFERON ALFA-2B [Suspect]
     Indication: HEPATITIS C
     Dosage: UNK
  3. BUPRENORPHINE [Concomitant]
     Dosage: UNK
     Dates: start: 2005
  4. DIACETYLMORPHINE [Concomitant]
     Dosage: UNK

REACTIONS (1)
  - Virologic failure [Unknown]
